FAERS Safety Report 8853288 (Version 2)
Quarter: 2012Q4

REPORT INFORMATION
  Report Type: 
  Country: US (occurrence: US)
  Receive Date: 20121022
  Receipt Date: 20121029
  Transmission Date: 20130627
  Serious: No
  Sender: FDA-Public Use
  Company Number: US-PFIZER INC-2012258904

PATIENT
  Age: 76 Year
  Sex: Female
  Weight: 70 kg

DRUGS (8)
  1. AROMASIN [Suspect]
     Indication: BREAST CANCER
     Dosage: UNK
     Dates: start: 200906, end: 2009
  2. ARIMIDEX ^ASTRAZENECA^ [Suspect]
     Dosage: UNK
     Dates: start: 2009, end: 2010
  3. CALCIUM [Concomitant]
     Indication: BONE DISORDER
     Dosage: 800 mg, daily
  4. CALCIUM [Concomitant]
     Indication: TOOTH DISORDER
  5. GLUCOSAMINE CHONDROITIN PM [Concomitant]
     Indication: ARTHROPATHY
     Dosage: 1500/1200 mg,  daily
  6. GLUCOSAMINE CHONDROITIN PM [Concomitant]
     Indication: ARTHRITIS
  7. ADVIL PM [Concomitant]
     Indication: SLEEP PROBLEM
     Dosage: 200/38 mg, as needed
  8. MELATONIN [Concomitant]
     Dosage: 10 mg, as needed

REACTIONS (3)
  - Alopecia [Not Recovered/Not Resolved]
  - Hot flush [Not Recovered/Not Resolved]
  - Night sweats [Not Recovered/Not Resolved]
